FAERS Safety Report 5883336-7 (Version None)
Quarter: 2008Q3

REPORT INFORMATION
  Report Type: 
  Country: None (occurrence: None)
  Receive Date: 20080910
  Receipt Date: 20080901
  Transmission Date: 20090109
  Serious: Yes (Death)
  Sender: FDA-Public Use
  Company Number: MSTR-N0-0809S-0058

PATIENT
  Age: 72 Year
  Sex: Female

DRUGS (1)
  1. METASTRON [Suspect]
     Indication: METASTATIC PAIN
     Dosage: 82 MBQ, SINGLE DOSE, I.V.
     Route: 042
     Dates: start: 20080513, end: 20080513

REACTIONS (1)
  - CONCOMITANT DISEASE AGGRAVATED [None]
